FAERS Safety Report 9559439 (Version 3)
Quarter: 2013Q4

REPORT INFORMATION
  Report Type: Spontaneous
  Country: JP (occurrence: JP)
  Receive Date: 20130927
  Receipt Date: 20131014
  Transmission Date: 20140711
  Serious: Yes (Hospitalization, Other)
  Sender: FDA-Public Use
  Company Number: JP-ELI_LILLY_AND_COMPANY-JP201308008429

PATIENT
  Age: 41 Year
  Sex: Male
  Weight: 60 kg

DRUGS (4)
  1. ZYPREXA [Suspect]
     Indication: SCHIZOPHRENIA
     Dosage: 10 MG, QD
     Route: 048
     Dates: end: 20110601
  2. PALIPERIDONE [Suspect]
     Indication: SCHIZOPHRENIA
     Dosage: UNK
     Route: 048
     Dates: end: 20110611
  3. SERENACE [Suspect]
     Indication: CATATONIA
     Dosage: UNK
     Route: 042
     Dates: start: 20110605, end: 20110607
  4. SERENACE [Suspect]
     Dosage: UNK
     Route: 042
     Dates: start: 20110620

REACTIONS (3)
  - Hyponatraemia [Recovered/Resolved]
  - Neuroleptic malignant syndrome [Recovered/Resolved]
  - Abdominal distension [Recovered/Resolved]
